FAERS Safety Report 19877124 (Version 1)
Quarter: 2021Q3

REPORT INFORMATION
  Report Type: Spontaneous
  Country: CA (occurrence: CA)
  Receive Date: 20210923
  Receipt Date: 20210923
  Transmission Date: 20211014
  Serious: Yes (Other)
  Sender: FDA-Public Use
  Company Number: CA-LUPIN PHARMACEUTICALS INC.-2021-17897

PATIENT
  Age: 34 Year
  Sex: Female

DRUGS (16)
  1. BUPIVACAINE. [Suspect]
     Active Substance: BUPIVACAINE
     Indication: SPINAL ANAESTHESIA
     Dosage: 12 MILLIGRAM
     Route: 065
  2. PHENYLEPHRINE [Suspect]
     Active Substance: PHENYLEPHRINE HYDROCHLORIDE
     Indication: PROPHYLAXIS
     Dosage: UNK 0.5 MICROG KG?1 MIN?1
     Route: 065
  3. MILRINONE [Concomitant]
     Active Substance: MILRINONE
     Indication: ANAPHYLACTOID SYNDROME OF PREGNANCY
     Dosage: 5 MILLIGRAM ((TOTAL DOSE 10 MG) 5MG DILUTED IN SODIUM CHLORIDE [NORMAL SALINE] TO A CONCENTRATION OF
     Route: 065
  4. EPINEPHRINE. [Concomitant]
     Active Substance: EPINEPHRINE
     Indication: PULSELESS ELECTRICAL ACTIVITY
     Dosage: 1 MILLIGRAM
     Route: 065
  5. ATROPINE. [Concomitant]
     Active Substance: ATROPINE
     Indication: BRADYCARDIA
     Dosage: 0.6 MILLIGRAM
     Route: 065
  6. VASOPRESSIN. [Concomitant]
     Active Substance: VASOPRESSIN
     Indication: PRODUCT USED FOR UNKNOWN INDICATION
     Dosage: UNK (0.033 U/MIN (2 U/H))
     Route: 065
  7. FENTANYL. [Suspect]
     Active Substance: FENTANYL
     Indication: SPINAL ANAESTHESIA
     Dosage: 20 MICROGRAM
     Route: 065
  8. NORMAL SALINE [Concomitant]
     Active Substance: SODIUM CHLORIDE
     Indication: VEHICLE SOLUTION USE
     Dosage: UNK(5MG MILRINONE WAS DILUTED IN SODIUM CHLORIDE TO A CONCENTRATION OF 1 MG/ML)
     Route: 065
  9. MORPHINE [Suspect]
     Active Substance: MORPHINE
     Indication: SPINAL ANAESTHESIA
     Dosage: 0.1 MILLIGRAM
     Route: 065
  10. CARBETOCIN [Concomitant]
     Active Substance: CARBETOCIN
     Indication: PRODUCT USED FOR UNKNOWN INDICATION
     Dosage: 100 MICROGRAM
     Route: 065
  11. TRANEXAMIC ACID. [Concomitant]
     Active Substance: TRANEXAMIC ACID
     Indication: VAGINAL HAEMORRHAGE
     Dosage: 1 GRAM
     Route: 065
  12. NOREPINEPHRINE. [Concomitant]
     Active Substance: NOREPINEPHRINE
     Indication: PRODUCT USED FOR UNKNOWN INDICATION
     Dosage: UNK 0.6 MICROG KG?1 MIN?1
     Route: 065
  13. ERGOTAMINE [Concomitant]
     Active Substance: CAFFEINE\ERGOTAMINE\ERGOTAMINE TARTRATE
     Indication: UTERINE ATONY
     Dosage: UNK (3 MILLION UNITS EVERY OTHER DAY)
     Route: 030
  14. CALCIUM CHLORIDE. [Concomitant]
     Active Substance: CALCIUM CHLORIDE
     Indication: PRODUCT USED FOR UNKNOWN INDICATION
     Dosage: 2 GRAM
     Route: 065
  15. CARBOPROST [Concomitant]
     Active Substance: CARBOPROST
     Indication: UTERINE ATONY
     Dosage: TWO DOSE
     Route: 030
  16. FRESH FROZEN PLASMA [Concomitant]
     Active Substance: HUMAN PLASMA
     Indication: VAGINAL HAEMORRHAGE
     Dosage: UNK 8 UNITS
     Route: 065

REACTIONS (3)
  - Premature delivery [Unknown]
  - Exposure during pregnancy [Unknown]
  - Premature rupture of membranes [Unknown]
